FAERS Safety Report 7683200-7 (Version None)
Quarter: 2011Q3

REPORT INFORMATION
  Report Type: 
  Country: None (occurrence: None)
  Receive Date: 20110815
  Receipt Date: 20110419
  Transmission Date: 20111222
  Serious: No
  Sender: FDA-Public Use
  Company Number: US-PFIZER INC-2011083494

PATIENT
  Sex: Female
  Weight: 69.388 kg

DRUGS (4)
  1. ADVIL LIQUI-GELS [Suspect]
     Indication: ARTHRITIS
     Dosage: 400 MG, 1X/DAY
     Route: 048
  2. ZIAC [Concomitant]
     Indication: HYPERTENSION
     Dosage: 2.5/6.25
     Route: 048
  3. LIPITOR [Concomitant]
     Indication: BLOOD CHOLESTEROL INCREASED
     Dosage: 10 MG, 1X/DAY
     Route: 048
  4. ATIVAN [Concomitant]
     Indication: ANXIETY
     Dosage: 1 MG, 1X/DAY
     Route: 048

REACTIONS (3)
  - PRODUCT QUALITY ISSUE [None]
  - HYPOAESTHESIA ORAL [None]
  - PRODUCT TASTE ABNORMAL [None]
